FAERS Safety Report 10408943 (Version 1)
Quarter: 2014Q1

REPORT INFORMATION
  Report Type: Spontaneous
  Country: US (occurrence: None)
  Receive Date: 20130701
  Receipt Date: 20130701
  Transmission Date: 20141002
  Serious: Yes (Life-Threatening)
  Sender: FDA-Public Use
  Company Number: 227428H

PATIENT
  Sex: 0

DRUGS (1)
  1. (FENTANYL CITRATE) [Suspect]
     Indication: PRODUCT USED FOR UNKNOWN INDICATION
     Route: 042
     Dates: start: 200903, end: 200903

REACTIONS (1)
  - Respiratory depression [None]
